FAERS Safety Report 6365731-5 (Version None)
Quarter: 2009Q3

REPORT INFORMATION
  Report Type: 
  Country: None (occurrence: None)
  Receive Date: 20090919
  Receipt Date: 20090819
  Transmission Date: 20100115
  Serious: No
  Sender: FDA-Public Use
  Company Number: US-ABBOTT-09P-163-0593106-00

PATIENT
  Sex: Female

DRUGS (1)
  1. HUMIRA [Suspect]
     Indication: RHEUMATOID ARTHRITIS
     Route: 058
     Dates: start: 20090615, end: 20090801

REACTIONS (6)
  - ASTHENIA [None]
  - EYE PRURITUS [None]
  - INCORRECT DRUG ADMINISTRATION DURATION [None]
  - OCULAR HYPERAEMIA [None]
  - PYREXIA [None]
  - TREMOR [None]
